FAERS Safety Report 11098028 (Version 1)
Quarter: 2015Q2

REPORT INFORMATION
  Report Type: Spontaneous
  Country: NL (occurrence: NL)
  Receive Date: 20150507
  Receipt Date: 20150507
  Transmission Date: 20150821
  Serious: Yes (Other)
  Sender: FDA-Public Use
  Company Number: NL-TEVA-559566ISR

PATIENT
  Age: 83 Year
  Sex: Female
  Weight: 99 kg

DRUGS (11)
  1. TAMOXIFEN TABLET 40MG [Suspect]
     Active Substance: TAMOXIFEN
     Dosage: 40 MILLIGRAM DAILY; ONCE DAILY ONE
     Route: 048
     Dates: start: 20150306, end: 20150317
  2. CALCI CHEW D3 KAUWTABLET  500MG/800IE [Concomitant]
     Dosage: 1 DOSAGE FORMS DAILY; 1DD1
     Route: 048
  3. HYDROCORTISONACETAAT 1% SIMPLEX BASISZALF      VAL [Concomitant]
     Dosage: MAXIMUM TWICE A DAY
     Route: 003
  4. IRBESARTAN TABLET 150MG [Concomitant]
     Dosage: 150 MILLIGRAM DAILY; 1DD1
     Route: 048
  5. ACETYLSALICYLZUUR TABLET  80MG [Concomitant]
     Dosage: 80 MILLIGRAM DAILY; 1DD1
     Route: 048
  6. EXEMESTAAN TABLET OMHULD 25MG [Concomitant]
     Dosage: 25 MILLIGRAM DAILY; 1DD1
     Route: 048
  7. NITROGLYCERINE SPRAY SUBLING. 0,4MG/DO [Concomitant]
     Dosage: USE UNKNOWN
     Route: 060
  8. MACROGOL EN ELECTR TEVA POEDER V DRANK IN SACHET [Concomitant]
     Dosage: 1 DOSAGE FORMS DAILY; ONCE DAILY ONE
     Route: 048
     Dates: start: 20150203
  9. SIMVASTATINE TABLET FO 10MG [Concomitant]
     Dosage: 10 MILLIGRAM DAILY; 1DD1
     Route: 048
  10. ESOMEPRAZOL CAPSULE MSR 20MG [Concomitant]
     Dosage: 20 MILLIGRAM DAILY; 1DD1
     Route: 048
  11. XGEVA 120 INJVLST 70MG/ML FLACON 1,7ML [Concomitant]
     Dosage: ONCE EVERY 4 WEEKS
     Route: 058

REACTIONS (4)
  - Chest pain [Recovered/Resolved with Sequelae]
  - Confusional state [Recovered/Resolved with Sequelae]
  - Dyspnoea [Recovered/Resolved with Sequelae]
  - Headache [Recovered/Resolved with Sequelae]

NARRATIVE: CASE EVENT DATE: 20150320
